FAERS Safety Report 14353759 (Version 1)
Quarter: 2018Q1

REPORT INFORMATION
  Report Type: Report from Study
  Country: TW (occurrence: TW)
  Receive Date: 20180105
  Receipt Date: 20180105
  Transmission Date: 20180509
  Serious: Yes (Hospitalization)
  Sender: FDA-Public Use
  Company Number: TW-ROCHE-1619585

PATIENT
  Age: 68 Year
  Sex: Male
  Weight: 67.7 kg

DRUGS (10)
  1. RANIBIZUMAB. [Suspect]
     Active Substance: RANIBIZUMAB
     Indication: POLYPOIDAL CHOROIDAL VASCULOPATHY
     Route: 031
     Dates: start: 20140428
  2. LEVOCETIRIZINE [Concomitant]
     Active Substance: LEVOCETIRIZINE
     Indication: RHINITIS ALLERGIC
     Route: 065
     Dates: start: 20150504
  3. SERRATIOPEPTIDASE [Concomitant]
     Active Substance: SERRAPEPTASE
     Route: 065
     Dates: start: 20150608
  4. SULFAMETHOXAZOLE [Concomitant]
     Active Substance: SULFAMETHOXAZOLE
     Route: 065
     Dates: start: 20150730
  5. GLYCOPYRROLATE. [Concomitant]
     Active Substance: GLYCOPYRROLATE
     Route: 048
     Dates: start: 20150511
  6. ACTEIN [Concomitant]
     Indication: BRONCHITIS CHRONIC
     Route: 048
     Dates: start: 20150608
  7. DEXTROMETHORPHAN [Concomitant]
     Active Substance: DEXTROMETHORPHAN
     Indication: BRONCHITIS CHRONIC
     Route: 048
     Dates: start: 20150608
  8. BUDESONIDE. [Concomitant]
     Active Substance: BUDESONIDE
     Indication: OBSTRUCTIVE AIRWAYS DISORDER
     Route: 048
     Dates: start: 20150706
  9. RANIBIZUMAB. [Suspect]
     Active Substance: RANIBIZUMAB
     Dosage: DATE OF LAST DOSE 30/JUL/2015
     Route: 031
     Dates: start: 20150730
  10. FORMOTEROL [Concomitant]
     Active Substance: FORMOTEROL
     Indication: OBSTRUCTIVE AIRWAYS DISORDER
     Route: 048
     Dates: start: 20150706

REACTIONS (2)
  - Ocular hypertension [Recovered/Resolved]
  - Endophthalmitis [Recovering/Resolving]

NARRATIVE: CASE EVENT DATE: 20150802
